FAERS Safety Report 17134061 (Version 1)
Quarter: 2019Q4

REPORT INFORMATION
  Report Type: Report from Study
  Country: US (occurrence: US)
  Receive Date: 20191210
  Receipt Date: 20191210
  Transmission Date: 20200122
  Serious: No
  Sender: FDA-Public Use
  Company Number: NVSC2019US025490

PATIENT
  Age: 58 Year
  Sex: Female

DRUGS (1)
  1. MAYZENT [Suspect]
     Active Substance: SIPONIMOD
     Indication: MULTIPLE SCLEROSIS
     Dosage: 1 MG/KG, QD
     Route: 048
     Dates: start: 20190927

REACTIONS (5)
  - Dizziness [Recovered/Resolved]
  - Pyrexia [Not Recovered/Not Resolved]
  - Hypotension [Recovering/Resolving]
  - Lethargy [Recovering/Resolving]
  - Nasopharyngitis [Not Recovered/Not Resolved]

NARRATIVE: CASE EVENT DATE: 20190929
